FAERS Safety Report 5609013-5 (Version None)
Quarter: 2008Q1

REPORT INFORMATION
  Report Type: 
  Country: None (occurrence: None)
  Receive Date: 20080131
  Receipt Date: 20080123
  Transmission Date: 20080703
  Serious: Yes (Death)
  Sender: FDA-Public Use
  Company Number: PHFR2008GB00672

PATIENT

DRUGS (1)
  1. EXELON [Suspect]
     Indication: ABNORMAL BEHAVIOUR
     Route: 062

REACTIONS (1)
  - DEATH [None]
